FAERS Safety Report 9412721 (Version 1)
Quarter: 2013Q3

REPORT INFORMATION
  Report Type: Spontaneous
  Country: US (occurrence: US)
  Receive Date: 20130722
  Receipt Date: 20130722
  Transmission Date: 20140515
  Serious: Yes (Other)
  Sender: FDA-Public Use
  Company Number: US-PFIZER INC-2013212258

PATIENT
  Age: 64 Year
  Sex: Male
  Weight: 74.83 kg

DRUGS (2)
  1. LIPITOR [Suspect]
     Indication: BLOOD CHOLESTEROL INCREASED
     Dosage: 10 MG, DAILY
     Route: 048
     Dates: start: 201306, end: 201306
  2. MINOCYCLINE [Concomitant]
     Indication: ROSACEA
     Dosage: 100 MG, AS NEEDED
     Route: 048
     Dates: start: 201306, end: 201306

REACTIONS (3)
  - Amnesia [Recovered/Resolved]
  - Confusional state [Recovering/Resolving]
  - Hand-eye coordination impaired [Recovered/Resolved]
